FAERS Safety Report 10341781 (Version 2)
Quarter: 2014Q3

REPORT INFORMATION
  Report Type: Spontaneous
  Country: AT (occurrence: AT)
  Receive Date: 20140725
  Receipt Date: 20140804
  Transmission Date: 20150326
  Serious: Yes (Life-Threatening, Hospitalization, Other)
  Sender: FDA-Public Use
  Company Number: AT-BAYER-2014-110411

PATIENT
  Age: 38 Year
  Sex: Female

DRUGS (1)
  1. MIRENA [Suspect]
     Active Substance: LEVONORGESTREL
     Dosage: 20 MCG/24HR, CONT
     Route: 015
     Dates: start: 20080304

REACTIONS (10)
  - Vaginal haemorrhage [None]
  - Endometriosis [None]
  - Ruptured ectopic pregnancy [Recovered/Resolved]
  - Infertility female [Not Recovered/Not Resolved]
  - Amenorrhoea [None]
  - Abdominal pain [None]
  - Ectopic pregnancy with contraceptive device [Recovered/Resolved with Sequelae]
  - Intra-abdominal haemorrhage [Recovered/Resolved]
  - Ovarian cyst [None]
  - Drug ineffective [None]

NARRATIVE: CASE EVENT DATE: 2008
